FAERS Safety Report 7808016-X (Version None)
Quarter: 2011Q4

REPORT INFORMATION
  Report Type: 
  Country: None (occurrence: None)
  Receive Date: 20111011
  Receipt Date: 20111011
  Transmission Date: 20120403
  Serious: Yes (Hospitalization, Other)
  Sender: FDA-Public Use
  Company Number: None

PATIENT
  Age: 32 Year
  Sex: Female
  Weight: 68.038 kg

DRUGS (1)
  1. LAMOTRIGINE [Suspect]
     Dosage: 25MG
     Route: 048
     Dates: start: 20110822, end: 20111010

REACTIONS (6)
  - LYMPHADENOPATHY [None]
  - ELLIPTOCYTOSIS [None]
  - PYREXIA [None]
  - CONTUSION [None]
  - BLOOD IMMUNOGLOBULIN E DECREASED [None]
  - HAEMOGLOBIN DECREASED [None]
